FAERS Safety Report 7952523-6 (Version None)
Quarter: 2011Q4

REPORT INFORMATION
  Report Type: 
  Country: None (occurrence: None)
  Receive Date: 20111201
  Receipt Date: 20111125
  Transmission Date: 20120403
  Serious: Yes (Other)
  Sender: FDA-Public Use
  Company Number: ID-PFIZER INC-2011289197

PATIENT

DRUGS (1)
  1. AROMASIN [Suspect]
     Route: 048

REACTIONS (3)
  - SKIN DISCOLOURATION [None]
  - ABASIA [None]
  - BONE PAIN [None]
